FAERS Safety Report 4874834-3 (Version None)
Quarter: 2006Q1

REPORT INFORMATION
  Report Type: 
  Country: None (occurrence: None)
  Receive Date: 20060104
  Receipt Date: 20051221
  Transmission Date: 20060701
  Serious: Yes (Life-Threatening, Other)
  Sender: FDA-Public Use
  Company Number: 2005153709

PATIENT
  Age: 81 Year
  Sex: Male

DRUGS (4)
  1. LYRICA [Suspect]
     Indication: PAIN
     Dosage: 75 MG (75 MG, 1 IN 1 D), ORAL
     Route: 048
     Dates: start: 20051104, end: 20051101
  2. MORPHINE SULFATE [Concomitant]
  3. ORAMORPH SR [Concomitant]
  4. LORAZEPAM [Concomitant]

REACTIONS (11)
  - BLOOD CREATINE INCREASED [None]
  - BLOOD POTASSIUM INCREASED [None]
  - BLOOD PRESSURE DECREASED [None]
  - DEHYDRATION [None]
  - FLUID INTAKE REDUCED [None]
  - HAEMOGLOBIN DECREASED [None]
  - LOSS OF CONSCIOUSNESS [None]
  - MYOCLONUS [None]
  - ORAL INTAKE REDUCED [None]
  - RESPIRATORY RATE DECREASED [None]
  - SOMNOLENCE [None]
